FAERS Safety Report 23977314 (Version 1)
Quarter: 2024Q2

REPORT INFORMATION
  Report Type: Spontaneous
  Country: US (occurrence: None)
  Receive Date: 20240614
  Receipt Date: 20240614
  Transmission Date: 20240716
  Serious: Yes (Other)
  Sender: FDA-Public Use
  Company Number: None

PATIENT
  Age: 74 Year
  Sex: Female
  Weight: 65.5 kg

DRUGS (3)
  1. VANCOMYCIN [Suspect]
     Active Substance: VANCOMYCIN
     Indication: Peritonitis
     Dosage: 1000 MG ONCE INTRAVENOUS?
     Route: 042
     Dates: start: 20240603, end: 20240603
  2. TUBERSOL [Concomitant]
     Active Substance: TUBERCULIN PURIFIED PROTEIN DERIVATIVE
     Dates: start: 20240603, end: 20240603
  3. ZOFRAN [Concomitant]
     Active Substance: ONDANSETRON HYDROCHLORIDE

REACTIONS (9)
  - Dialysis [None]
  - Infusion related reaction [None]
  - Feeling hot [None]
  - Erythema [None]
  - Dyspnoea [None]
  - Chest discomfort [None]
  - Blood pressure decreased [None]
  - Heart rate increased [None]
  - Drug hypersensitivity [None]

NARRATIVE: CASE EVENT DATE: 20240603
